FAERS Safety Report 7514700-8 (Version None)
Quarter: 2011Q2

REPORT INFORMATION
  Report Type: 
  Country: None (occurrence: None)
  Receive Date: 20110526
  Receipt Date: 20110526
  Transmission Date: 20111010
  Serious: Yes (Life-Threatening, Hospitalization, Disabling)
  Sender: FDA-Public Use
  Company Number: None

PATIENT
  Sex: Female
  Weight: 41.2773 kg

DRUGS (2)
  1. DEXILANT [Suspect]
     Indication: ABDOMINAL PAIN UPPER
     Dosage: 60 MG (5) ONCE DAILY BY MOUTH
     Route: 048
     Dates: start: 20100528, end: 20100601
  2. DEXILANT [Suspect]
     Indication: PAIN

REACTIONS (7)
  - VENTILATION/PERFUSION SCAN [None]
  - CATHETERISATION CARDIAC [None]
  - LABORATORY TEST [None]
  - ELECTROCARDIOGRAM [None]
  - CHEST X-RAY [None]
  - STRESS ECHOCARDIOGRAM [None]
  - OESOPHAGOGASTRODUODENOSCOPY [None]
